FAERS Safety Report 4684165-2 (Version None)
Quarter: 2005Q2

REPORT INFORMATION
  Report Type: 
  Country: None (occurrence: None)
  Receive Date: 20050607
  Receipt Date: 20041122
  Transmission Date: 20051028
  Serious: Yes (Life-Threatening, Hospitalization)
  Sender: FDA-Public Use
  Company Number: CH-GLAXOSMITHKLINE-B0358693A

PATIENT
  Age: 50 Year
  Sex: Female
  Weight: 85 kg

DRUGS (6)
  1. ZINACEF [Suspect]
     Indication: PROPHYLAXIS
     Dosage: 1.5G SINGLE DOSE
     Route: 042
     Dates: start: 20030424, end: 20030424
  2. ZINAT [Suspect]
     Indication: DRUG USE FOR UNKNOWN INDICATION
     Route: 048
  3. PROPOFOL [Concomitant]
     Indication: SURGERY
     Route: 042
     Dates: start: 20030424, end: 20030424
  4. ULTIVA [Concomitant]
     Indication: SURGERY
     Route: 042
     Dates: start: 20030424, end: 20030424
  5. KETALAR [Concomitant]
     Indication: SURGERY
     Route: 065
     Dates: start: 20030424, end: 20030424
  6. MIDAZOLAM [Concomitant]
     Indication: SURGERY
     Route: 065
     Dates: start: 20030424, end: 20030424

REACTIONS (10)
  - ANAPHYLACTIC SHOCK [None]
  - BRONCHOSPASM [None]
  - DYSPNOEA [None]
  - EXANTHEM [None]
  - FEELING HOT [None]
  - HYPERSENSITIVITY [None]
  - HYPOTENSION [None]
  - RASH [None]
  - TACHYCARDIA [None]
  - URTICARIA [None]
